FAERS Safety Report 19781797 (Version 1)
Quarter: 2021Q3

REPORT INFORMATION
  Report Type: Report from Study
  Country: US (occurrence: US)
  Receive Date: 20210902
  Receipt Date: 20210902
  Transmission Date: 20211014
  Serious: Yes (Hospitalization)
  Sender: FDA-Public Use
  Company Number: US-DAIICHI SANKYO (CHINA) HOLDINGS CO., LTD.-DSU-2021-128408

PATIENT
  Age: 73 Year
  Sex: Female
  Weight: 81.5 kg

DRUGS (2)
  1. TRASTUZUMAB DERUXTECAN. [Suspect]
     Active Substance: TRASTUZUMAB DERUXTECAN
     Indication: UTERINE CANCER
     Dosage: 440 MG, ONCE EVERY 3 WK
     Route: 042
     Dates: start: 20210804
  2. DRONABINOL. [Concomitant]
     Active Substance: DRONABINOL
     Indication: INCREASED APPETITE
     Dosage: UNK
     Route: 065

REACTIONS (3)
  - Decreased appetite [Recovering/Resolving]
  - Muscular weakness [Recovering/Resolving]
  - Fatigue [Recovering/Resolving]

NARRATIVE: CASE EVENT DATE: 20210810
